FAERS Safety Report 10082037 (Version 2)
Quarter: 2014Q2

REPORT INFORMATION
  Report Type: Spontaneous
  Country: IT (occurrence: IT)
  Receive Date: 20140416
  Receipt Date: 20140423
  Transmission Date: 20141212
  Serious: Yes (Life-Threatening)
  Sender: FDA-Public Use
  Company Number: IT-PFIZER INC-2014102325

PATIENT
  Age: 43 Year
  Sex: Female

DRUGS (8)
  1. TYGACIL [Suspect]
     Indication: STENOTROPHOMONAS SEPSIS
     Dosage: 100 MG, 2X/DAY LOADING DOSE
  2. TYGACIL [Suspect]
     Dosage: 25 MG, 2X/DAY
  3. CEFOTAXIME [Concomitant]
     Dosage: UNK
     Route: 042
  4. TERLIPRESSIN [Concomitant]
     Indication: RENAL FAILURE CHRONIC
     Dosage: UNK
     Route: 042
  5. ALBUMIN [Concomitant]
     Indication: RENAL FAILURE CHRONIC
     Dosage: UNK
  6. CEPHALOSPORINS [Concomitant]
  7. TRIMETHOPRIM/COTRIMOXAZOLE [Concomitant]
  8. LEVOFLOXACIN [Concomitant]
     Dosage: UNK

REACTIONS (4)
  - Coagulopathy [Recovered/Resolved]
  - Hypofibrinogenaemia [Recovered/Resolved]
  - Gastrointestinal haemorrhage [Recovered/Resolved]
  - Hyperbilirubinaemia [Unknown]
